FAERS Safety Report 9315907 (Version 1)
Quarter: 2013Q2

REPORT INFORMATION
  Report Type: Spontaneous
  Country: FR (occurrence: FR)
  Receive Date: 20130530
  Receipt Date: 20130530
  Transmission Date: 20140414
  Serious: Yes (Other)
  Sender: FDA-Public Use
  Company Number: FR-ROCHE-1229934

PATIENT
  Age: 57 Year
  Sex: Female

DRUGS (10)
  1. ROCEPHINE [Suspect]
     Indication: FEBRILE BONE MARROW APLASIA
     Route: 042
     Dates: start: 20130409, end: 20130415
  2. ZELITREX [Suspect]
     Indication: PRODUCT USED FOR UNKNOWN INDICATION
     Route: 048
     Dates: end: 20130409
  3. ZELITREX [Suspect]
     Route: 048
     Dates: start: 20130410
  4. ZELITREX [Suspect]
     Route: 048
     Dates: start: 20130411, end: 20130415
  5. ZELITREX [Suspect]
     Route: 048
     Dates: start: 20130416
  6. ZELITREX [Suspect]
     Route: 048
     Dates: start: 20130417
  7. ORAMORPH [Concomitant]
     Dosage: 8 DROPS
     Route: 048
     Dates: start: 20130412
  8. ORAMORPH [Concomitant]
     Dosage: 12 DROP
     Route: 048
     Dates: start: 20130413
  9. ORAMORPH [Concomitant]
     Dosage: 8 DROPS
     Route: 048
     Dates: start: 20130414, end: 20130415
  10. MELPHALAN [Concomitant]
     Route: 065
     Dates: start: 20130403

REACTIONS (1)
  - Disturbance in attention [Recovered/Resolved]
